FAERS Safety Report 5825724-0 (Version None)
Quarter: 2008Q3

REPORT INFORMATION
  Report Type: 
  Country: None (occurrence: None)
  Receive Date: 20080728
  Receipt Date: 20080728
  Transmission Date: 20090109
  Serious: Yes (Other)
  Sender: FDA-Public Use
  Company Number: None

PATIENT
  Age: 33 Year
  Sex: Female
  Weight: 81.6475 kg

DRUGS (1)
  1. ZOFRAN ODT [Suspect]
     Indication: VOMITING IN PREGNANCY
     Dosage: 4 MG 1 DAILY PO
     Route: 048
     Dates: start: 20080722, end: 20080724

REACTIONS (6)
  - ANXIETY [None]
  - CHEST PAIN [None]
  - DYSPNOEA [None]
  - MUSCLE SPASMS [None]
  - MUSCLE TWITCHING [None]
  - MUSCULOSKELETAL STIFFNESS [None]
